FAERS Safety Report 8506931-5 (Version None)
Quarter: 2012Q3

REPORT INFORMATION
  Report Type: 
  Country: None (occurrence: None)
  Receive Date: 20120703
  Receipt Date: 20120626
  Transmission Date: 20120928
  Serious: Yes (Life-Threatening)
  Sender: FDA-Public Use
  Company Number: 2012SP035651

PATIENT
  Sex: Female

DRUGS (1)
  1. DULERA [Suspect]
     Indication: PRODUCT USED FOR UNKNOWN INDICATION
     Dosage: INH
     Route: 055

REACTIONS (1)
  - CEREBROVASCULAR ACCIDENT [None]
